FAERS Safety Report 9316873 (Version 1)
Quarter: 2013Q2

REPORT INFORMATION
  Report Type: Spontaneous
  Country: US (occurrence: US)
  Receive Date: 20130530
  Receipt Date: 20130530
  Transmission Date: 20140414
  Serious: No
  Sender: FDA-Public Use
  Company Number: US-NOVEN-12US004497

PATIENT
  Age: 13 Year
  Sex: Male
  Weight: 26.98 kg

DRUGS (1)
  1. DAYTRANA [Suspect]
     Indication: ATTENTION DEFICIT/HYPERACTIVITY DISORDER
     Dosage: 15 MG, QD
     Route: 062
     Dates: start: 20120314, end: 20120417

REACTIONS (2)
  - Heart rate increased [Recovered/Resolved]
  - Incorrect drug administration duration [Recovered/Resolved]
